FAERS Safety Report 14694850 (Version 1)
Quarter: 2018Q1

REPORT INFORMATION
  Report Type: Spontaneous
  Country: JP (occurrence: JP)
  Receive Date: 20180329
  Receipt Date: 20180329
  Transmission Date: 20180509
  Serious: Yes (Death, Other)
  Sender: FDA-Public Use
  Company Number: JP-ELI_LILLY_AND_COMPANY-JP201803011857

PATIENT
  Age: 85 Year
  Sex: Male

DRUGS (1)
  1. FORTEO [Suspect]
     Active Substance: TERIPARATIDE
     Indication: OSTEOPOROSIS
     Dosage: 20 UG, DAILY
     Route: 058
     Dates: start: 20180316, end: 20180319

REACTIONS (10)
  - Death [Fatal]
  - Depressed level of consciousness [Unknown]
  - Loss of consciousness [Recovered/Resolved]
  - C-reactive protein increased [Unknown]
  - Pyrexia [Unknown]
  - Protein total decreased [Unknown]
  - Decreased appetite [Unknown]
  - Blood pressure decreased [Recovered/Resolved]
  - Haemoglobin decreased [Unknown]
  - Weight decreased [Unknown]

NARRATIVE: CASE EVENT DATE: 20180319
